FAERS Safety Report 9998094 (Version 1)
Quarter: 2014Q1

REPORT INFORMATION
  Report Type: Spontaneous
  Country: US (occurrence: None)
  Receive Date: 20140221
  Receipt Date: 20140221
  Transmission Date: 20141002
  Serious: Yes (Other)
  Sender: FDA-Public Use
  Company Number: 1000051930

PATIENT
  Age: 68 Year
  Sex: Male

DRUGS (4)
  1. TUDORZA PRESSAIR (ACLIDINIUM BROMIDE) (400 MICROGRAM, POWDER) [Suspect]
     Indication: CHRONIC OBSTRUCTIVE PULMONARY DISEASE
     Dosage: 800 MCG (400 MCG, 2 IN 1 D), RESPIRATORY (INHALATION)
     Route: 055
     Dates: start: 201310, end: 201311
  2. COMBIVENT (IPRATROPIUM BROMIDE, ALBUTEROL SULFATE) [Suspect]
     Indication: CHRONIC OBSTRUCTIVE PULMONARY DISEASE
  3. METOPROLOL (METOPROLOL) (25 MILLIGRAM) (METOPROLOL) [Concomitant]
  4. DIOVAN (VALSARTAN) (160 MILLIGRAM) (VALSARTAN) [Concomitant]

REACTIONS (3)
  - Chest pain [None]
  - Dyspnoea [None]
  - Drug interaction [None]
